FAERS Safety Report 5008870-3 (Version None)
Quarter: 2006Q2

REPORT INFORMATION
  Report Type: 
  Country: None (occurrence: None)
  Receive Date: 20060518
  Receipt Date: 20060502
  Transmission Date: 20061013
  Serious: Yes (Death)
  Sender: FDA-Public Use
  Company Number: DSA_28120_2006

PATIENT
  Age: 44 Year
  Sex: Male

DRUGS (5)
  1. ATIVAN [Suspect]
     Dosage: 1 MG BID PO
     Route: 048
     Dates: end: 20030204
  2. EFFEXOR XR [Suspect]
     Indication: DEPRESSION
     Dosage: 150 MG Q DAY PO
     Route: 048
     Dates: start: 20030101, end: 20030204
  3. ABILIFY [Suspect]
     Dosage: 15 MG Q DAY PO
     Route: 048
     Dates: end: 20030204
  4. SERZONE [Suspect]
     Dosage: 75 MG Q DAY UNK
     Route: 065
     Dates: end: 20030204
  5. EFFEXOR XR [Suspect]
     Indication: DEPRESSION
     Dosage: 375 MG Q DAY PO
     Route: 048
     Dates: end: 20030101

REACTIONS (5)
  - ARTERIOSCLEROSIS CORONARY ARTERY [None]
  - CARDIO-RESPIRATORY ARREST [None]
  - CYANOSIS [None]
  - DRUG DOSE OMISSION [None]
  - FALL [None]
